FAERS Safety Report 8260473-3 (Version None)
Quarter: 2012Q2

REPORT INFORMATION
  Report Type: 
  Country: None (occurrence: None)
  Receive Date: 20120404
  Receipt Date: 20120325
  Transmission Date: 20120825
  Serious: Yes (Hospitalization)
  Sender: FDA-Public Use
  Company Number: FR-MERCK-1007FRA00116

PATIENT
  Age: 73 Year
  Sex: Male
  Weight: 70 kg

DRUGS (5)
  1. REPAGLINIDE [Concomitant]
     Indication: TYPE 2 DIABETES MELLITUS
     Route: 048
     Dates: start: 20091120, end: 20100425
  2. REPAGLINIDE [Concomitant]
     Route: 048
     Dates: start: 20100426, end: 20100519
  3. JANUMET [Suspect]
     Route: 048
     Dates: start: 20100526, end: 20110225
  4. GLIMEPIRIDE [Concomitant]
     Indication: TYPE 2 DIABETES MELLITUS
     Route: 048
     Dates: start: 20091120, end: 20100519
  5. JANUMET [Suspect]
     Indication: TYPE 2 DIABETES MELLITUS
     Route: 048
     Dates: start: 20091120, end: 20100519

REACTIONS (1)
  - DIABETES MELLITUS INADEQUATE CONTROL [None]
